FAERS Safety Report 8833883 (Version 3)
Quarter: 2012Q4

REPORT INFORMATION
  Report Type: 
  Country: JP (occurrence: JP)
  Receive Date: 20121011
  Receipt Date: 20121030
  Transmission Date: 20130627
  Serious: Yes (Other)
  Sender: FDA-Public Use
  Company Number: JP-009507513-1210JPN004348

PATIENT
  Age: 82 Year
  Sex: Female

DRUGS (2)
  1. GASTER [Suspect]
     Dosage: 20 mg, bid
     Route: 048
  2. [THERAPY UNSPECIFIED] [Concomitant]

REACTIONS (1)
  - Dementia [Unknown]
